FAERS Safety Report 9256860 (Version 1)
Quarter: 2013Q2

REPORT INFORMATION
  Report Type: Spontaneous
  Country: US (occurrence: None)
  Receive Date: 20130423
  Receipt Date: 20130423
  Transmission Date: 20140414
  Serious: Yes (Other)
  Sender: FDA-Public Use
  Company Number: None

PATIENT
  Sex: Female

DRUGS (1)
  1. ROC DAILY RESURFACING DISKS [Suspect]
     Indication: ACCIDENTAL EXPOSURE TO PRODUCT
     Route: 047

REACTIONS (12)
  - Exposure via direct contact [None]
  - Eyelid irritation [None]
  - Photophobia [None]
  - Foreign body sensation in eyes [None]
  - Visual acuity reduced [None]
  - Erythema of eyelid [None]
  - Chemical eye injury [None]
  - Corneal infection [None]
  - Punctate keratosis [None]
  - Keratitis [None]
  - Eye pain [None]
  - Accidental exposure to product [None]
